FAERS Safety Report 6028356-7 (Version None)
Quarter: 2009Q1

REPORT INFORMATION
  Report Type: 
  Country: None (occurrence: None)
  Receive Date: 20090106
  Receipt Date: 20081224
  Transmission Date: 20090719
  Serious: Yes (Other)
  Sender: FDA-Public Use
  Company Number: PHHY2008JP33244

PATIENT
  Age: 48 Year
  Sex: Male

DRUGS (1)
  1. LOPRESSOR [Suspect]
     Dosage: 40 MG/DAY

REACTIONS (2)
  - CLAVICLE FRACTURE [None]
  - SYNCOPE [None]
